FAERS Safety Report 7132865-7 (Version None)
Quarter: 2010Q4

REPORT INFORMATION
  Report Type: 
  Country: None (occurrence: None)
  Receive Date: 20101202
  Receipt Date: 20101110
  Transmission Date: 20110411
  Serious: No
  Sender: FDA-Public Use
  Company Number: US-PFIZER INC-US-WYE-H16739810

PATIENT
  Sex: Male
  Weight: 88.435 kg

DRUGS (2)
  1. PREMARIN [Suspect]
     Indication: URINARY INCONTINENCE
     Dosage: 0.625 MG/GRAM NIGHTLY
     Route: 067
  2. PREMARIN [Suspect]
     Dosage: 1.5 G 3 TIMES PER 1 WK
     Route: 067

REACTIONS (2)
  - ACCIDENTAL EXPOSURE [None]
  - LIBIDO INCREASED [None]
